FAERS Safety Report 7845244-1 (Version None)
Quarter: 2011Q4

REPORT INFORMATION
  Report Type: 
  Country: None (occurrence: None)
  Receive Date: 20111025
  Receipt Date: 20111018
  Transmission Date: 20120403
  Serious: Yes (Hospitalization, Other)
  Sender: FDA-Public Use
  Company Number: US-ABBOTT-11P-163-0838836-00

PATIENT
  Age: 62 Year
  Sex: Male

DRUGS (6)
  1. BROAD SPECTRUM ANTIBIOTICS [Concomitant]
     Indication: SEPSIS
  2. FLUID [Concomitant]
     Indication: PRODUCT USED FOR UNKNOWN INDICATION
     Route: 042
  3. VALPROATE SODIUM [Suspect]
     Indication: AFFECTIVE DISORDER
     Route: 051
  4. VALPROATE SODIUM [Suspect]
     Route: 048
  5. BARIUM SULFATE [Concomitant]
     Indication: PRODUCT USED FOR UNKNOWN INDICATION
  6. DEXTROSE [Concomitant]
     Indication: PRODUCT USED FOR UNKNOWN INDICATION

REACTIONS (3)
  - COMPARTMENT SYNDROME [None]
  - BLISTER [None]
  - INFUSION SITE EXTRAVASATION [None]
